FAERS Safety Report 14232018 (Version 1)
Quarter: 2017Q4

REPORT INFORMATION
  Report Type: Spontaneous
  Country: US (occurrence: US)
  Receive Date: 20171128
  Receipt Date: 20171128
  Transmission Date: 20180321
  Serious: Yes (Hospitalization)
  Sender: FDA-Public Use
  Company Number: US-LEADIANT BIOSCIENCES INC-2016STPI000909

PATIENT
  Age: 70 Year
  Sex: Male

DRUGS (12)
  1. LOVENOX [Concomitant]
     Active Substance: ENOXAPARIN SODIUM
  2. OMEPRAZOLE. [Concomitant]
     Active Substance: OMEPRAZOLE
  3. NYSTATIN. [Concomitant]
     Active Substance: NYSTATIN
  4. ACYCLOVIR                          /00587301/ [Concomitant]
     Active Substance: ACYCLOVIR
  5. SULFAMETHOXAZOL                    /00025501/ [Concomitant]
  6. ASPIRIN                            /00002701/ [Concomitant]
     Active Substance: ASPIRIN
  7. FUROSEMIDE. [Concomitant]
     Active Substance: FUROSEMIDE
  8. CHLORHEX [Concomitant]
  9. MATULANE [Suspect]
     Active Substance: PROCARBAZINE HYDROCHLORIDE
     Indication: DIFFUSE LARGE B-CELL LYMPHOMA
     Dosage: 50 MG, QD
     Route: 048
     Dates: start: 20161017
  10. ATORVASTATIN [Concomitant]
     Active Substance: ATORVASTATIN
  11. LISINOPRIL. [Concomitant]
     Active Substance: LISINOPRIL
  12. METOPROLOL. [Concomitant]
     Active Substance: METOPROLOL

REACTIONS (2)
  - Urinary tract infection [Unknown]
  - Blood count abnormal [Unknown]

NARRATIVE: CASE EVENT DATE: 2016
